FAERS Safety Report 23483014 (Version 3)
Quarter: 2025Q3

REPORT INFORMATION
  Report Type: Spontaneous
  Country: US (occurrence: US)
  Receive Date: 20240205
  Receipt Date: 20250911
  Transmission Date: 20251021
  Serious: No
  Sender: PFIZER
  Company Number: US-PFIZER INC-202400030546

PATIENT
  Age: 12 Year
  Sex: Female
  Weight: 61.23 kg

DRUGS (1)
  1. LITFULO [Suspect]
     Active Substance: RITLECITINIB TOSYLATE
     Indication: Alopecia areata
     Dosage: GUESSES IN OCT2023, THINKS 50MG, ONE CAPSULE ONCE A DAY
     Route: 048
     Dates: start: 202310

REACTIONS (2)
  - Influenza [Unknown]
  - Therapeutic response unexpected [Unknown]
